FAERS Safety Report 4358646-5 (Version None)
Quarter: 2004Q2

REPORT INFORMATION
  Report Type: 
  Country: None (occurrence: None)
  Receive Date: 20040513
  Receipt Date: 20040513
  Transmission Date: 20050107
  Serious: Yes (Hospitalization)
  Sender: FDA-Public Use
  Company Number: None

PATIENT
  Age: 76 Year
  Sex: Male

DRUGS (10)
  1. DILTIAZEM ER CAPSULE 240 MG (MYLAN) [Suspect]
     Indication: HYPERTENSION
     Dosage: 240 MG PO DAILY
     Route: 048
     Dates: start: 20040505, end: 20040511
  2. AZMACORT [Concomitant]
  3. CLONIDINE HCL [Concomitant]
  4. HUMIBID LA [Concomitant]
  5. DIGOXIN [Concomitant]
  6. MAGOX [Concomitant]
  7. NYSTATIN [Concomitant]
  8. KCL TAB [Concomitant]
  9. RHINIOCORT [Concomitant]
  10. SEREVENT [Concomitant]

REACTIONS (1)
  - ERYTHEMA MULTIFORME [None]
